FAERS Safety Report 18359075 (Version 1)
Quarter: 2020Q4

REPORT INFORMATION
  Report Type: Spontaneous
  Country: ES (occurrence: ES)
  Receive Date: 20201008
  Receipt Date: 20201008
  Transmission Date: 20210114
  Serious: Yes (Life-Threatening, Hospitalization)
  Sender: FDA-Public Use
  Company Number: ES-TEVA-2020-ES-1835901

PATIENT
  Age: 64 Year
  Sex: Female

DRUGS (3)
  1. MIRTAZAPINA 30 MG 30 COMPRIMIDOS [Suspect]
     Active Substance: MIRTAZAPINE
     Indication: INTENTIONAL OVERDOSE
     Dosage: 900MG
     Route: 048
     Dates: start: 20200911, end: 20200911
  2. DEPRAX 100 MG COMPRIMIDOS RECUBIERTOS CON PELICULA EFG , 30 COMPRIMIDO [Interacting]
     Active Substance: TRAZODONE HYDROCHLORIDE
     Indication: INTENTIONAL OVERDOSE
     Dosage: 300MG
     Route: 048
     Dates: start: 20200911, end: 20200911
  3. TRANXILIUM 10 MG CAPSULAS DURAS, 30 CAPSULAS [Interacting]
     Active Substance: CLORAZEPATE DIPOTASSIUM
     Indication: INTENTIONAL OVERDOSE
     Dosage: TRANXILIUM 10 MG 2 BOXES, 600MG
     Route: 048
     Dates: start: 20200911, end: 20200911

REACTIONS (3)
  - Drug interaction [Unknown]
  - Aspiration [Recovering/Resolving]
  - Confusional state [Recovering/Resolving]

NARRATIVE: CASE EVENT DATE: 20200912
